FAERS Safety Report 6172864-5 (Version None)
Quarter: 2009Q2

REPORT INFORMATION
  Report Type: 
  Country: None (occurrence: None)
  Receive Date: 20090430
  Receipt Date: 20090416
  Transmission Date: 20091009
  Serious: Yes (Death, Hospitalization)
  Sender: FDA-Public Use
  Company Number: JP-ROCHE-605446

PATIENT
  Sex: Male
  Weight: 43.8 kg

DRUGS (20)
  1. NAPROXEN [Suspect]
     Indication: CANCER PAIN
     Dosage: FORM: ORAL FORMULATION (NOT OTHERWISE SPECIFIED)
     Route: 048
  2. ERLOTINIB [Suspect]
     Indication: LUNG ADENOCARCINOMA
     Route: 048
     Dates: start: 20080703, end: 20080815
  3. DUROTEP [Concomitant]
     Dosage: FORM: TAPE
     Route: 062
     Dates: end: 20080715
  4. DUROTEP [Concomitant]
     Dosage: FORM: TAPE
     Route: 062
     Dates: start: 20080716, end: 20080804
  5. DUROTEP [Concomitant]
     Route: 062
     Dates: start: 20080805, end: 20080818
  6. LENDORMIN [Concomitant]
     Route: 048
     Dates: end: 20080815
  7. GABAPEN [Concomitant]
     Route: 048
     Dates: end: 20080816
  8. SELBEX [Concomitant]
     Dosage: FORM: ORAL FORMULATION (NOT OTHERWISE SPECIFIED)
     Route: 048
     Dates: end: 20080816
  9. ZOMETA [Concomitant]
     Dosage: ROUTE: INTRAVENOUS (NOT OTHERWISE SPECIFIED)
     Route: 042
     Dates: start: 20080730, end: 20080730
  10. ARGAMATE [Concomitant]
     Route: 048
     Dates: start: 20080731, end: 20080803
  11. OMEPRAL [Concomitant]
     Dosage: ROUTE: INTRAVENOUS (NOT OTHERWISE SPECIFIED)
     Route: 042
     Dates: start: 20080731, end: 20080803
  12. FESIN [Concomitant]
     Dosage: ROUTE: INTRAVENOUS (NOT OTHERWISE SPECIFIED)
     Route: 042
     Dates: start: 20080731, end: 20080804
  13. MORPHINE HYDROCHLORIDE [Concomitant]
     Dosage: 20 MG ON SINGLE USE FORM: ORAL FORMULATION (NOT OTHERWISE SPECIFIED)
     Route: 048
     Dates: start: 20080801, end: 20080801
  14. COCARL [Concomitant]
     Dosage: 400 MG ON SINGLE USE THE FIRST
     Route: 048
     Dates: start: 20080803, end: 20080807
  15. ROCEPHIN [Concomitant]
     Dosage: ROUTE: INTRAVENOUS (NOT OTHERWISE SPECIFIED)
     Route: 042
     Dates: start: 20080804, end: 20080808
  16. MOBIC [Concomitant]
     Route: 048
     Dates: start: 20080805, end: 20080815
  17. FERO-GRADUMET [Concomitant]
     Route: 048
     Dates: start: 20080805, end: 20080816
  18. PARIET [Concomitant]
     Route: 048
     Dates: start: 20080807, end: 20080816
  19. MAXIPIME [Concomitant]
     Dosage: ROUTE: INTRAVENOUS (NOT OTHERWISE SPECIFIED)
     Route: 042
     Dates: start: 20080809, end: 20080815
  20. SULPERAZON [Concomitant]
     Dosage: ROUTE: INTRAVENOUS (NOT OTHERWISE SPECIFIED)
     Route: 042
     Dates: start: 20080816, end: 20080817

REACTIONS (6)
  - DERMATITIS ACNEIFORM [None]
  - DISEASE PROGRESSION [None]
  - GASTRIC ULCER [None]
  - INFECTION [None]
  - PARONYCHIA [None]
  - RENAL IMPAIRMENT [None]
